FAERS Safety Report 16843266 (Version 1)
Quarter: 2019Q3

REPORT INFORMATION
  Report Type: Spontaneous
  Country: US (occurrence: US)
  Receive Date: 20190924
  Receipt Date: 20190924
  Transmission Date: 20191005
  Serious: No
  Sender: FDA-Public Use
  Company Number: US-ALLERGAN-1914514US

PATIENT
  Age: 41 Year
  Sex: Female

DRUGS (1)
  1. LEXAPRO [Suspect]
     Active Substance: ESCITALOPRAM OXALATE
     Indication: CRYING
     Dosage: UNK
     Route: 065
     Dates: start: 20181121, end: 201902

REACTIONS (4)
  - Hyperphagia [Unknown]
  - Depression [Unknown]
  - Weight increased [Unknown]
  - Crying [Unknown]

NARRATIVE: CASE EVENT DATE: 20190116
